FAERS Safety Report 25045300 (Version 1)
Quarter: 2025Q1

REPORT INFORMATION
  Report Type: Spontaneous
  Country: US (occurrence: None)
  Receive Date: 20250305
  Receipt Date: 20250305
  Transmission Date: 20250409
  Serious: No
  Sender: FDA-CTU
  Company Number: None

PATIENT
  Age: 68 Year
  Sex: Female

DRUGS (1)
  1. ADEMPAS [Suspect]
     Active Substance: RIOCIGUAT
     Indication: Pulmonary hypertension
     Dosage: 0.5MG TID ORAL ?
     Route: 048
     Dates: start: 20241213, end: 20250305

REACTIONS (1)
  - Blood pressure systolic decreased [None]

NARRATIVE: CASE EVENT DATE: 20250305
